FAERS Safety Report 21110408 (Version 1)
Quarter: 2022Q3

REPORT INFORMATION
  Report Type: Report from Study
  Country: CA (occurrence: CA)
  Receive Date: 20220721
  Receipt Date: 20220721
  Transmission Date: 20221026
  Serious: Yes (Other)
  Sender: FDA-Public Use
  Company Number: CA-NOVARTISPH-NVSC2022CA164698

PATIENT
  Age: 41 Year
  Sex: Male

DRUGS (4)
  1. MONTELUKAST [Suspect]
     Active Substance: MONTELUKAST SODIUM
     Indication: Asthma
     Dosage: 10 MG, QD
     Route: 048
     Dates: start: 2018
  2. ADVAIR HFA [Concomitant]
     Active Substance: FLUTICASONE PROPIONATE\SALMETEROL XINAFOATE
     Indication: Asthma
     Dosage: 2 DOSAGE FORM, BID
     Route: 055
     Dates: start: 2001
  3. VENTOLIN [Concomitant]
     Active Substance: ALBUTEROL SULFATE
     Indication: Asthma
     Dosage: 1 DOSAGE FORM, PRN
     Route: 055
     Dates: start: 1985
  4. PREDNISONE [Concomitant]
     Active Substance: PREDNISONE
     Indication: Asthma
     Dosage: 2 DOSAGE FORM, QD
     Route: 048
     Dates: start: 2013

REACTIONS (2)
  - Aspergillus infection [Unknown]
  - Blood immunoglobulin E increased [Unknown]

NARRATIVE: CASE EVENT DATE: 20211015
